APPROVED DRUG PRODUCT: FLUTICASONE PROPIONATE
Active Ingredient: FLUTICASONE PROPIONATE
Strength: 0.05%
Dosage Form/Route: LOTION;TOPICAL
Application: A091553 | Product #001
Applicant: PADAGIS ISRAEL PHARMACEUTICALS LTD
Approved: Jul 30, 2013 | RLD: No | RS: Yes | Type: RX